FAERS Safety Report 5104678-9 (Version None)
Quarter: 2006Q3

REPORT INFORMATION
  Report Type: 
  Country: None (occurrence: None)
  Receive Date: 20060914
  Receipt Date: 20060904
  Transmission Date: 20061208
  Serious: Yes (Hospitalization)
  Sender: FDA-Public Use
  Company Number: PHBS2006TR13352

PATIENT
  Age: 29 Year
  Sex: Female

DRUGS (3)
  1. TRILEPTAL [Suspect]
     Indication: EPILEPSY
     Route: 048
     Dates: end: 20060902
  2. TRILEPTAL [Suspect]
     Dosage: 8 TABLETS
     Route: 048
     Dates: start: 20060903, end: 20060903
  3. FLURBIPROFEN [Suspect]
     Dosage: 5 TO 6 TABLETS
     Route: 048
     Dates: start: 20060903, end: 20060903

REACTIONS (2)
  - INTENTIONAL OVERDOSE [None]
  - SUICIDE ATTEMPT [None]
